FAERS Safety Report 7824127-7 (Version None)
Quarter: 2011Q4

REPORT INFORMATION
  Report Type: 
  Country: None (occurrence: None)
  Receive Date: 20111019
  Receipt Date: 20111010
  Transmission Date: 20120403
  Serious: Yes (Other)
  Sender: FDA-Public Use
  Company Number: US-NOVOPROD-333919

PATIENT

DRUGS (2)
  1. NORDITROPIN FLEXPRO [Suspect]
     Indication: TURNER'S SYNDROME
     Dosage: 1.95 MG, 6 NIGHTS/WEEK
     Route: 058
     Dates: end: 20110804
  2. PREMARIN [Concomitant]
     Indication: PRODUCT USED FOR UNKNOWN INDICATION
     Dosage: 0.3 MG, QOD

REACTIONS (2)
  - HAIR FOLLICLE TUMOUR BENIGN [None]
  - HEADACHE [None]
